FAERS Safety Report 4588435-8 (Version None)
Quarter: 2005Q1

REPORT INFORMATION
  Report Type: 
  Country: None (occurrence: None)
  Receive Date: 20050216
  Receipt Date: 20050204
  Transmission Date: 20050727
  Serious: Yes (Death, Hospitalization)
  Sender: FDA-Public Use
  Company Number: US_0409106186

PATIENT
  Age: 79 Year
  Sex: Female
  Weight: 68 kg

DRUGS (26)
  1. GEMCITABINE HYDROCHLORIDE-IV (GEMCITABINE) [Suspect]
     Indication: NON-SMALL CELL LUNG CANCER
     Dosage: 1250 MG/M2 OTHER
     Route: 050
     Dates: start: 20040827, end: 20041101
  2. CARBOPLATIN [Suspect]
     Indication: NON-SMALL CELL LUNG CANCER
     Dosage: 5 DSG FORM OTHER
     Route: 050
     Dates: start: 20040827, end: 20041025
  3. TRIAMTERENE AND HYDROCHLOROTHIAZIDE [Concomitant]
  4. SYNTHROID [Concomitant]
  5. COZAAR [Concomitant]
  6. LIPITOR [Concomitant]
  7. LASIX [Concomitant]
  8. POTASSIUM CHLORIDE [Concomitant]
  9. NITROQUICK (GLYCERYL TRINITRATE) [Concomitant]
  10. ALPRAZOLAM [Concomitant]
  11. HYDROCODONE [Concomitant]
  12. DUONEB [Concomitant]
  13. OXYGEN [Concomitant]
  14. MORPHINE SULFATE [Concomitant]
  15. SENOKOT (SENNA ALEXANDRINA) [Concomitant]
  16. LEVAQUIN [Concomitant]
  17. ARANESP [Concomitant]
  18. INNOHEP [Concomitant]
  19. COUMADIN [Concomitant]
  20. MS CONTIN [Concomitant]
  21. PHENERGAN [Concomitant]
  22. KYTRIL [Concomitant]
  23. ADVAIR DISKUS 100/50 [Concomitant]
  24. VENTOLIN (SALBUTAMOL SULFATE) [Concomitant]
  25. HYDROMORPHONE [Concomitant]
  26. MORPHINE [Concomitant]

REACTIONS (14)
  - ABDOMINAL DISCOMFORT [None]
  - ACUTE RESPIRATORY FAILURE [None]
  - ANOREXIA [None]
  - CONFUSIONAL STATE [None]
  - FATIGUE [None]
  - HYPOKALAEMIA [None]
  - MULTI-ORGAN FAILURE [None]
  - ORAL INTAKE REDUCED [None]
  - PANCYTOPENIA [None]
  - PERFORMANCE STATUS DECREASED [None]
  - PHLEBOTHROMBOSIS [None]
  - PITTING OEDEMA [None]
  - PULMONARY EMBOLISM [None]
  - SEPSIS SYNDROME [None]
